FAERS Safety Report 10279878 (Version 2)
Quarter: 2014Q3

REPORT INFORMATION
  Report Type: Spontaneous
  Country: IT (occurrence: IT)
  Receive Date: 20140707
  Receipt Date: 20140718
  Transmission Date: 20150326
  Serious: Yes (Hospitalization)
  Sender: FDA-Public Use
  Company Number: PHHY2014IT082338

PATIENT
  Age: 46 Year
  Sex: Male

DRUGS (2)
  1. SOLDESAM [Suspect]
     Active Substance: DEXAMETHASONE
     Indication: BACK PAIN
     Dosage: 4 MG, DAILY
     Route: 030
     Dates: start: 20140525, end: 20140608
  2. DICLOFENAC [Suspect]
     Active Substance: DICLOFENAC
     Indication: BACK PAIN
     Dosage: 1 DF, DAILY
     Route: 030
     Dates: start: 20140525, end: 20140608

REACTIONS (5)
  - Chills [Unknown]
  - Renal failure acute [Unknown]
  - Headache [Unknown]
  - Hyperpyrexia [Unknown]
  - Pyrexia [Unknown]

NARRATIVE: CASE EVENT DATE: 20140608
